FAERS Safety Report 9274922 (Version 1)
Quarter: 2013Q2

REPORT INFORMATION
  Report Type: Spontaneous
  Country: US (occurrence: None)
  Receive Date: 20130501
  Receipt Date: 20130501
  Transmission Date: 20140414
  Serious: No
  Sender: FDA-Public Use
  Company Number: None

PATIENT
  Age: 65 Year
  Sex: Female

DRUGS (12)
  1. REVLIMID 10 MG DAILY X21D/28D ORALLY [Suspect]
     Indication: PLASMA CELL MYELOMA
     Route: 048
     Dates: start: 201202, end: 201212
  2. REVLIMID [Concomitant]
  3. DECADRON [Concomitant]
  4. ASA [Concomitant]
  5. ATIVAN [Concomitant]
  6. TYLENOL [Concomitant]
  7. PRILOSEC [Concomitant]
  8. ZOFRAN [Concomitant]
  9. PROZAC [Concomitant]
  10. GLUCOSAMINE-CHONDROITIN [Concomitant]
  11. COMPAZINE [Concomitant]
  12. NORTRIPTYLINE [Concomitant]

REACTIONS (3)
  - Neutropenia [None]
  - Thrombocytopenia [None]
  - Plasma cell myeloma [None]
